FAERS Safety Report 9252089 (Version 2)
Quarter: 2013Q3

REPORT INFORMATION
  Report Type: Spontaneous
  Country: DK (occurrence: CA)
  Receive Date: 20130424
  Receipt Date: 20130830
  Transmission Date: 20140515
  Serious: Yes (Other)
  Sender: FDA-Public Use
  Company Number: CA-FRI-1000044640

PATIENT
  Age: 76 Year
  Sex: Male

DRUGS (5)
  1. ESCITALOPRAM [Suspect]
     Indication: ANXIETY
     Dosage: 10 MG
     Route: 048
     Dates: start: 20121020, end: 20121022
  2. ATIVAN [Concomitant]
     Dosage: 2-3 TIMES A DAY
     Route: 048
  3. CALCIUM [Concomitant]
     Route: 048
  4. HYZAAR [Concomitant]
     Indication: HYPERTENSION
     Dosage: 25 MG
     Route: 048
  5. MULTIVITAMINES [Concomitant]
     Route: 048

REACTIONS (11)
  - Dyskinesia [Recovered/Resolved]
  - Dyspnoea [Recovered/Resolved]
  - Hallucination [Recovered/Resolved]
  - Heart rate decreased [Recovered/Resolved]
  - Incoherent [Recovered/Resolved]
  - Loss of consciousness [Recovered/Resolved]
  - Restlessness [Recovered/Resolved]
  - Somnolence [Recovered/Resolved]
  - Tachyphrenia [Recovered/Resolved]
  - Tremor [Recovered/Resolved]
  - Glassy eyes [Recovered/Resolved]
